FAERS Safety Report 6962822-2 (Version None)
Quarter: 2010Q3

REPORT INFORMATION
  Report Type: 
  Country: None (occurrence: None)
  Receive Date: 20100902
  Receipt Date: 20100823
  Transmission Date: 20110219
  Serious: Yes (Other)
  Sender: FDA-Public Use
  Company Number: US-PFIZER INC-2010106536

PATIENT
  Age: 32 Year
  Sex: Male

DRUGS (5)
  1. ALPRAZOLAM [Suspect]
     Dosage: 0.25 MG, 4X/DAY
  2. SERTRALINE HYDROCHLORIDE [Suspect]
     Dosage: 3.125MG DAILY
  3. SERTRALINE HYDROCHLORIDE [Suspect]
     Dosage: 6.25MG DAILY
  4. SERTRALINE HYDROCHLORIDE [Suspect]
     Dosage: 9.375MG DAILY
  5. DIAZEPAM [Concomitant]
     Indication: FEAR
     Dosage: 5 MG, AS NEEDED

REACTIONS (4)
  - GENERALISED ANXIETY DISORDER [None]
  - OBSESSIVE-COMPULSIVE DISORDER [None]
  - PANIC ATTACK [None]
  - PHOBIC AVOIDANCE [None]
